FAERS Safety Report 8460445-X (Version None)
Quarter: 2012Q2

REPORT INFORMATION
  Report Type: 
  Country: None (occurrence: None)
  Receive Date: 20120622
  Receipt Date: 20120607
  Transmission Date: 20120825
  Serious: Yes (Other)
  Sender: FDA-Public Use
  Company Number: CHPA2012US012558

PATIENT
  Age: 39 Year
  Sex: Female

DRUGS (2)
  1. EXCEDRIN (MIGRAINE) [Suspect]
     Indication: MIGRAINE
     Dosage: 2 DF, PRN
     Route: 048
  2. EXCEDRIN PM CAPLETS [Suspect]
     Indication: MIGRAINE
     Dosage: 1 OR 2 DF, PRN
     Route: 048
     Dates: end: 20120101

REACTIONS (2)
  - SOMNOLENCE [None]
  - HEADACHE [None]
